FAERS Safety Report 16089238 (Version 1)
Quarter: 2019Q1

REPORT INFORMATION
  Report Type: Spontaneous
  Country: US (occurrence: US)
  Receive Date: 20190319
  Receipt Date: 20190319
  Transmission Date: 20190418
  Serious: No
  Sender: FDA-Public Use
  Company Number: US-TRIS PHARMA, INC.-2019TRISPO00203

PATIENT

DRUGS (1)
  1. IBUPROFEN. [Suspect]
     Active Substance: IBUPROFEN
     Indication: PYREXIA
     Dosage: 5 ML, EVERY 6-8 HOURS
     Route: 065
     Dates: start: 20190209

REACTIONS (3)
  - Off label use [Unknown]
  - Eye swelling [Not Recovered/Not Resolved]
  - Incorrect dosage administered [Unknown]
